FAERS Safety Report 17900373 (Version 2)
Quarter: 2020Q3

REPORT INFORMATION
  Report Type: Spontaneous
  Country: US (occurrence: US)
  Receive Date: 20200616
  Receipt Date: 20200716
  Transmission Date: 20201103
  Serious: No
  Sender: FDA-Public Use
  Company Number: US-PFIZER INC-2020233377

PATIENT
  Age: 61 Year
  Sex: Female
  Weight: 118.37 kg

DRUGS (3)
  1. IBRANCE [Suspect]
     Active Substance: PALBOCICLIB
     Indication: BREAST CANCER
     Dosage: 125 MG, CYCLIC, (DAILY 21 DAYS 1?21, THEN 7 DAYS OFF)
     Route: 048
     Dates: start: 20200427
  2. IBRANCE [Suspect]
     Active Substance: PALBOCICLIB
     Dosage: 125 MG CYCLIC (DAILY, 21 DAYS ON/7 DAYS OFF)
     Route: 048
     Dates: start: 20200427
  3. MOTRIN IB [Concomitant]
     Active Substance: IBUPROFEN
     Dosage: UNK(MOTRIN IB 200 MG)

REACTIONS (6)
  - Cough [Unknown]
  - Lymphadenopathy [Recovering/Resolving]
  - Headache [Unknown]
  - Alopecia [Unknown]
  - Nausea [Unknown]
  - Oropharyngeal pain [Unknown]
